FAERS Safety Report 13340837 (Version 1)
Quarter: 2017Q1

REPORT INFORMATION
  Report Type: Spontaneous
  Country: US (occurrence: US)
  Receive Date: 20170315
  Receipt Date: 20170315
  Transmission Date: 20170428
  Serious: No
  Sender: FDA-Public Use
  Company Number: None

PATIENT
  Age: 24 Year
  Sex: Male

DRUGS (1)
  1. IMATINIB 400MG RANBAXY [Suspect]
     Active Substance: IMATINIB
     Indication: PLASMA CELL MYELOMA
     Route: 048
     Dates: start: 20160915

REACTIONS (6)
  - Rash pruritic [None]
  - Staphylococcal infection [None]
  - Drug hypersensitivity [None]
  - Rash erythematous [None]
  - Product substitution issue [None]
  - Streptococcal infection [None]

NARRATIVE: CASE EVENT DATE: 20160926
